FAERS Safety Report 21957677 (Version 1)
Quarter: 2023Q1

REPORT INFORMATION
  Report Type: Spontaneous
  Country: CA (occurrence: CA)
  Receive Date: 20230206
  Receipt Date: 20230206
  Transmission Date: 20230418
  Serious: Yes (Hospitalization)
  Sender: FDA-Public Use
  Company Number: CA-PFIZER INC-202300047504

PATIENT
  Age: 75 Year
  Sex: Female
  Weight: 60 kg

DRUGS (25)
  1. BEVACIZUMAB [Suspect]
     Active Substance: BEVACIZUMAB
     Indication: Colorectal cancer
     Dosage: 300 MG
  2. IRINOTECAN HYDROCHLORIDE [Suspect]
     Active Substance: IRINOTECAN HYDROCHLORIDE
     Indication: Colorectal cancer
     Dosage: 260 MG
  3. FLUOROURACIL [Suspect]
     Active Substance: FLUOROURACIL
     Indication: Colorectal cancer
     Dosage: 3350 MG
  4. FLUOROURACIL [Suspect]
     Active Substance: FLUOROURACIL
     Dosage: 590 MG
  5. LEUCOVORIN [Suspect]
     Active Substance: LEUCOVORIN
     Indication: Colorectal cancer
     Dosage: 590 MG
  6. ACETAMINOPHEN [Concomitant]
     Active Substance: ACETAMINOPHEN
  7. ATROPINE [Concomitant]
     Active Substance: ATROPINE
  8. CALCIUM [Concomitant]
     Active Substance: CALCIUM
  9. CITALOPRAM [Concomitant]
     Active Substance: CITALOPRAM HYDROBROMIDE
  10. DECADRON [Concomitant]
     Active Substance: DEXAMETHASONE
  11. DENOSUMAB [Concomitant]
     Active Substance: DENOSUMAB
  12. DEXAMETHASONE [Concomitant]
     Active Substance: DEXAMETHASONE
     Dosage: UNK
  13. DEXAMETHASONE [Concomitant]
     Active Substance: DEXAMETHASONE
     Dosage: UNK
  14. DIMENHYDRINATE [Concomitant]
     Active Substance: DIMENHYDRINATE
  15. FERROUS SULFATE [Concomitant]
     Active Substance: FERROUS SULFATE
  16. LOPERAMIDE [Concomitant]
     Active Substance: LOPERAMIDE
  17. LORAZEPAM [Concomitant]
     Active Substance: LORAZEPAM
     Route: 065
  18. MONTELUKAST [Concomitant]
     Active Substance: MONTELUKAST SODIUM
  19. MORPHINE [Concomitant]
     Active Substance: MORPHINE
  20. ONDANSETRON [Concomitant]
     Active Substance: ONDANSETRON
  21. OXAZEPAM [Concomitant]
     Active Substance: OXAZEPAM
  22. PANTOPRAZOLE [Concomitant]
     Active Substance: PANTOPRAZOLE
  23. PROCHLORPERAZINE [Concomitant]
     Active Substance: PROCHLORPERAZINE
  24. SANDOSTATIN [Concomitant]
     Active Substance: OCTREOTIDE ACETATE
  25. VITAMIN D NOS [Concomitant]
     Active Substance: VITAMIN D NOS

REACTIONS (2)
  - Febrile neutropenia [Recovered/Resolved]
  - Large intestinal obstruction [Recovered/Resolved]
